FAERS Safety Report 23301353 (Version 2)
Quarter: 2024Q1

REPORT INFORMATION
  Report Type: Spontaneous
  Country: CA (occurrence: CA)
  Receive Date: 20231215
  Receipt Date: 20240119
  Transmission Date: 20240409
  Serious: Yes (Other)
  Sender: FDA-Public Use
  Company Number: CA-002147023-NVSC2023CA263911

PATIENT

DRUGS (1)
  1. CIPROFLOXACIN [Suspect]
     Active Substance: CIPROFLOXACIN
     Indication: Prostatitis
     Dosage: 2 DOSAGE FORM, QD (2 EVERY 1 DAYS)
     Route: 065

REACTIONS (15)
  - Dehydration [Unknown]
  - Negative thoughts [Unknown]
  - Panic attack [Unknown]
  - Malnutrition [Unknown]
  - Intrusive thoughts [Unknown]
  - Phobia [Unknown]
  - Insomnia [Unknown]
  - Vertigo [Unknown]
  - Mania [Unknown]
  - Muscular weakness [Unknown]
  - Tremor [Unknown]
  - Anxiety [Unknown]
  - Abdominal pain [Unknown]
  - Agitation [Unknown]
  - Diarrhoea [Unknown]
